FAERS Safety Report 24034367 (Version 5)
Quarter: 2025Q4

REPORT INFORMATION
  Report Type: Spontaneous
  Country: None (occurrence: CA)
  Receive Date: 20240701
  Receipt Date: 20251126
  Transmission Date: 20260118
  Serious: Yes (Other)
  Sender: MYLAN
  Company Number: CA-MYLANLABS-2020337315

PATIENT
  Age: 47 Year
  Sex: Male
  Weight: 86.18 kg

DRUGS (4)
  1. REVATIO [Suspect]
     Active Substance: SILDENAFIL CITRATE
     Indication: Pulmonary arterial hypertension
     Dosage: 20 MILLIGRAM, TID (3 TIMES A DAY)
     Dates: start: 20200715
  2. REVATIO [Suspect]
     Active Substance: SILDENAFIL CITRATE
     Dosage: 20 MILLIGRAM (MORE THAN 3 TIMES SOMEDAYS)
  3. LANSOPRAZOLE [Concomitant]
     Active Substance: LANSOPRAZOLE
     Dosage: UNK
  4. ELIQUIS [Concomitant]
     Active Substance: APIXABAN
     Dosage: UNK

REACTIONS (4)
  - Pulmonary pain [Unknown]
  - Headache [Unknown]
  - Intentional product misuse [Unknown]
  - Adverse event [Unknown]

NARRATIVE: CASE EVENT DATE: 20200828
